FAERS Safety Report 12671077 (Version 3)
Quarter: 2016Q4

REPORT INFORMATION
  Report Type: Spontaneous
  Country: US (occurrence: US)
  Receive Date: 20160822
  Receipt Date: 20161026
  Transmission Date: 20170207
  Serious: Yes (Disabling, Other)
  Sender: FDA-Public Use
  Company Number: US-ABBVIE-16K-163-1702928-00

PATIENT
  Sex: Male
  Weight: 98.97 kg

DRUGS (7)
  1. HUMIRA [Suspect]
     Active Substance: ADALIMUMAB
     Indication: PSORIASIS
     Route: 058
     Dates: start: 2015, end: 201603
  2. HUMIRA [Suspect]
     Active Substance: ADALIMUMAB
     Indication: PSORIATIC ARTHROPATHY
     Route: 058
     Dates: start: 2014, end: 2015
  3. HUMIRA [Suspect]
     Active Substance: ADALIMUMAB
     Route: 058
     Dates: start: 201603, end: 201603
  4. ALLEGRA [Concomitant]
     Active Substance: FEXOFENADINE HYDROCHLORIDE
     Indication: HYPERSENSITIVITY
  5. SYMBICORT [Concomitant]
     Active Substance: BUDESONIDE\FORMOTEROL FUMARATE DIHYDRATE
     Indication: ASTHMA
  6. NEXIUM [Concomitant]
     Active Substance: ESOMEPRAZOLE MAGNESIUM
     Indication: GASTROOESOPHAGEAL REFLUX DISEASE
  7. MULTIVITAMIN [Concomitant]
     Active Substance: VITAMINS
     Indication: PRODUCT USED FOR UNKNOWN INDICATION

REACTIONS (20)
  - Impaired work ability [Unknown]
  - Eosinophil count increased [Recovered/Resolved]
  - Fatigue [Unknown]
  - Dizziness [Unknown]
  - Drug hypersensitivity [Unknown]
  - Blood pressure abnormal [Unknown]
  - Feeling abnormal [Not Recovered/Not Resolved]
  - White blood cell count increased [Recovered/Resolved]
  - Weight increased [Recovered/Resolved]
  - Oedema peripheral [Unknown]
  - Neuropathy peripheral [Recovered/Resolved]
  - Mental impairment [Unknown]
  - Impaired work ability [Not Recovered/Not Resolved]
  - Drug level decreased [Unknown]
  - Eosinophilic fasciitis [Recovering/Resolving]
  - Feeling abnormal [Unknown]
  - Amnesia [Unknown]
  - Physical disability [Unknown]
  - White blood cell count increased [Recovering/Resolving]
  - Peripheral swelling [Recovered/Resolved]

NARRATIVE: CASE EVENT DATE: 2015
